FAERS Safety Report 5447434-4 (Version None)
Quarter: 2007Q3

REPORT INFORMATION
  Report Type: 
  Country: None (occurrence: None)
  Receive Date: 20070910
  Receipt Date: 20070831
  Transmission Date: 20080115
  Serious: Yes (Other)
  Sender: FDA-Public Use
  Company Number: US-AMGEN-STX241518

PATIENT
  Sex: Female

DRUGS (1)
  1. ENBREL [Suspect]
     Indication: ARTHRITIS
     Route: 058
     Dates: start: 20060415

REACTIONS (7)
  - CYSTITIS [None]
  - DENTAL OPERATION [None]
  - INJECTION SITE PAIN [None]
  - PULMONARY HYPERTENSION [None]
  - URINARY INCONTINENCE [None]
  - URINARY RETENTION [None]
  - VAGINAL INFECTION [None]
